FAERS Safety Report 6647155-6 (Version None)
Quarter: 2010Q1

REPORT INFORMATION
  Report Type: 
  Country: None (occurrence: None)
  Receive Date: 20100323
  Receipt Date: 20100319
  Transmission Date: 20100710
  Serious: Yes (Death, Other)
  Sender: FDA-Public Use
  Company Number: PHHY2010CA07125

PATIENT
  Sex: Female

DRUGS (7)
  1. EXELON [Suspect]
     Indication: DEMENTIA ALZHEIMER'S TYPE
     Dosage: 4.6 MG, QD
     Route: 062
     Dates: start: 20091103
  2. EXELON [Suspect]
     Dosage: 9.5 MG, QD
     Route: 062
  3. FOSAMAX [Concomitant]
     Dosage: 70 MG, QW
  4. INDERAL [Concomitant]
     Dosage: 80 MG/DAY
  5. CALCIUM [Concomitant]
     Dosage: 500/400 MG/DAY
  6. PAROXETINE HCL [Concomitant]
     Dosage: 10 MG/DAY
  7. RINA D [Concomitant]
     Dosage: 400 MG/DAY

REACTIONS (3)
  - ARRHYTHMIA [None]
  - INFARCTION [None]
  - MALAISE [None]
